FAERS Safety Report 4287980-2 (Version None)
Quarter: 2004Q1

REPORT INFORMATION
  Report Type: 
  Country: None (occurrence: None)
  Receive Date: 20040209
  Receipt Date: 20031110
  Transmission Date: 20041129
  Serious: No
  Sender: FDA-Public Use
  Company Number: US-GLAXOSMITHKLINE-A0439028A

PATIENT
  Sex: Male

DRUGS (2)
  1. PAXIL [Suspect]
     Indication: DEPRESSION
     Dosage: 12.5MG PER DAY
     Route: 048
     Dates: start: 20031106, end: 20031108
  2. CLARITIN [Concomitant]

REACTIONS (5)
  - DISORIENTATION [None]
  - FEELING ABNORMAL [None]
  - FLIGHT OF IDEAS [None]
  - IRRITABILITY [None]
  - MUSCLE TIGHTNESS [None]
